FAERS Safety Report 7474704-0 (Version None)
Quarter: 2011Q2

REPORT INFORMATION
  Report Type: 
  Country: None (occurrence: None)
  Receive Date: 20110512
  Receipt Date: 20110428
  Transmission Date: 20111010
  Serious: Yes (Other)
  Sender: FDA-Public Use
  Company Number: DE-RANBAXY-2011RR-44271

PATIENT
  Sex: Female
  Weight: 66 kg

DRUGS (6)
  1. FOLIC ACID [Concomitant]
     Indication: PROPHYLAXIS OF NEURAL TUBE DEFECT
     Dosage: UNK
     Route: 048
  2. NASIC [Concomitant]
     Indication: SEASONAL ALLERGY
     Dosage: UNK
     Route: 045
  3. CETIRIZINE HCL [Concomitant]
     Indication: SEASONAL ALLERGY
     Dosage: UNK
     Route: 048
  4. PAROXETINE HCL [Suspect]
     Indication: ANXIETY DISORDER
     Dosage: UNK
     Route: 048
  5. SCOPE [Suspect]
     Indication: PAIN
     Dosage: UNK
     Route: 048
  6. LORAZEPAM [Suspect]
     Indication: SLEEP DISORDER
     Dosage: UNK
     Route: 048

REACTIONS (1)
  - ABORTION SPONTANEOUS [None]
